FAERS Safety Report 21057204 (Version 1)
Quarter: 2022Q3

REPORT INFORMATION
  Report Type: Spontaneous
  Country: CN (occurrence: CN)
  Receive Date: 20220708
  Receipt Date: 20220708
  Transmission Date: 20221027
  Serious: Yes (Hospitalization)
  Sender: FDA-Public Use
  Company Number: CN-BAYER-2022A092653

PATIENT
  Age: 72 Year
  Sex: Male

DRUGS (1)
  1. STIVARGA [Suspect]
     Active Substance: REGORAFENIB
     Indication: Colon cancer metastatic
     Dosage: 40 MG, QD
     Route: 048
     Dates: start: 20210928, end: 20220623

REACTIONS (8)
  - Abdominal distension [None]
  - Abdominal pain [None]
  - Asthenia [None]
  - Diarrhoea [Recovering/Resolving]
  - Rash vesicular [Recovering/Resolving]
  - Skin hyperpigmentation [None]
  - Skin induration [None]
  - Off label use [None]

NARRATIVE: CASE EVENT DATE: 20210928
